FAERS Safety Report 23849713 (Version 5)
Quarter: 2025Q1

REPORT INFORMATION
  Report Type: Other
  Country: US (occurrence: US)
  Receive Date: 20240513
  Receipt Date: 20250325
  Transmission Date: 20250409
  Serious: No
  Sender: TRAVERE THERAPEUTICS
  Company Number: US-TRAVERE-2024TVT00264

PATIENT
  Age: 64 Year
  Sex: Male

DRUGS (4)
  1. FILSPARI [Suspect]
     Active Substance: SPARSENTAN
     Indication: IgA nephropathy
     Route: 048
     Dates: start: 20240302
  2. FILSPARI [Suspect]
     Active Substance: SPARSENTAN
     Indication: Chronic kidney disease
     Route: 048
     Dates: start: 202403, end: 20240721
  3. FILSPARI [Suspect]
     Active Substance: SPARSENTAN
     Indication: Proteinuria
     Route: 048
  4. JARDIANCE [Concomitant]
     Active Substance: EMPAGLIFLOZIN

REACTIONS (6)
  - Hypotension [Unknown]
  - Faeces hard [Unknown]
  - Dizziness [Unknown]
  - Heart rate increased [Unknown]
  - Blood pressure increased [Unknown]
  - Dyspnoea [Unknown]

NARRATIVE: CASE EVENT DATE: 20240419
